FAERS Safety Report 5190043-5 (Version None)
Quarter: 2006Q4

REPORT INFORMATION
  Report Type: 
  Country: None (occurrence: None)
  Receive Date: 20061215
  Receipt Date: 20061206
  Transmission Date: 20070319
  Serious: Yes (Hospitalization)
  Sender: FDA-Public Use
  Company Number: T200601416

PATIENT
  Age: 75 Year
  Sex: Female

DRUGS (2)
  1. OPTIRAY 160 [Suspect]
     Indication: COMPUTERISED TOMOGRAM HEAD
     Dosage: 100 ML, SINGLE , INTRAENOUS
     Route: 042
     Dates: start: 20061201, end: 20061201
  2. CARBAMAZEPINE [Concomitant]

REACTIONS (2)
  - PYREXIA [None]
  - RASH [None]
